FAERS Safety Report 8834352 (Version 1)
Quarter: 2012Q4

REPORT INFORMATION
  Report Type: Spontaneous
  Country: US (occurrence: None)
  Receive Date: 20121010
  Receipt Date: 20121010
  Transmission Date: 20130627
  Serious: No
  Sender: FDA-Public Use
  Company Number: None

PATIENT
  Age: 76 Year
  Sex: Female
  Weight: 56.25 kg

DRUGS (1)
  1. CARBIDOPA-LEVODOPA [Suspect]
     Indication: PARKINSON^S DISEASE
     Dosage: 25-100 1-2 every 3-4 hrs.

REACTIONS (3)
  - Drug effect decreased [None]
  - Drug effect decreased [None]
  - Product quality issue [None]
